FAERS Safety Report 16646144 (Version 1)
Quarter: 2019Q3

REPORT INFORMATION
  Report Type: Spontaneous
  Country: US (occurrence: US)
  Receive Date: 20190615
  Receipt Date: 20190615
  Transmission Date: 20191004
  Serious: Yes (Life-Threatening, Other)
  Sender: FDA-Public Use
  Company Number: None

PATIENT
  Age: 52 Year
  Sex: Female
  Weight: 68.95 kg

DRUGS (1)
  1. WARFARIN [Suspect]
     Active Substance: WARFARIN
     Indication: ANTIPHOSPHOLIPID SYNDROME
     Route: 048
     Dates: start: 20120516

REACTIONS (1)
  - Transient ischaemic attack [None]

NARRATIVE: CASE EVENT DATE: 20190524
